FAERS Safety Report 10935423 (Version 1)
Quarter: 2015Q1

REPORT INFORMATION
  Report Type: Spontaneous
  Country: US (occurrence: US)
  Receive Date: 20150320
  Receipt Date: 20150320
  Transmission Date: 20150721
  Serious: No
  Sender: FDA-Public Use
  Company Number: US-009507513-1503USA003987

PATIENT
  Sex: Female
  Weight: 49.89 kg

DRUGS (1)
  1. NEXPLANON [Suspect]
     Active Substance: ETONOGESTREL
     Indication: CONTRACEPTION
     Dosage: 1 DF, 3 YEARS
     Route: 059
     Dates: start: 20130801

REACTIONS (5)
  - Implant site irritation [Unknown]
  - Implant site bruising [Unknown]
  - Implant site discolouration [Unknown]
  - Implant site pruritus [Unknown]
  - Implant site swelling [Unknown]
